FAERS Safety Report 4874385-6 (Version None)
Quarter: 2006Q1

REPORT INFORMATION
  Report Type: 
  Country: None (occurrence: None)
  Receive Date: 20060104
  Receipt Date: 20060104
  Transmission Date: 20060701
  Serious: No
  Sender: FDA-Public Use
  Company Number: None

PATIENT
  Age: 57 Year
  Sex: Female
  Weight: 69.4003 kg

DRUGS (1)
  1. SINGULAIR [Suspect]
     Dosage: 10MG 1 DAY

REACTIONS (1)
  - PARAESTHESIA [None]
